FAERS Safety Report 19304576 (Version 1)
Quarter: 2021Q2

REPORT INFORMATION
  Report Type: Not Available
  Country: CO (occurrence: CO)
  Receive Date: 20210525
  Receipt Date: 20210525
  Transmission Date: 20210717
  Serious: Yes (Hospitalization)
  Sender: FDA-Public Use
  Company Number: CO-TEIKOKU PHARMA USA-TPU2021-00547

PATIENT
  Age: 45 Year
  Sex: Female

DRUGS (1)
  1. VERSATIS [Suspect]
     Active Substance: LIDOCAINE
     Indication: PAIN
     Route: 061
     Dates: start: 20201209

REACTIONS (3)
  - Leg amputation [Unknown]
  - Radiculopathy [Recovered/Resolved]
  - Adverse event [Recovered/Resolved]
